FAERS Safety Report 20713197 (Version 1)
Quarter: 2022Q2

REPORT INFORMATION
  Report Type: Report from Study
  Country: US (occurrence: US)
  Receive Date: 20220415
  Receipt Date: 20220415
  Transmission Date: 20220720
  Serious: Yes (Hospitalization, Other)
  Sender: FDA-Public Use
  Company Number: US-MYLANLABS-2022M1026719

PATIENT
  Age: 86 Year
  Sex: Male

DRUGS (5)
  1. ERYTHROMYCIN [Suspect]
     Active Substance: ERYTHROMYCIN
     Indication: Neurotrophic keratopathy
     Dosage: UNK
     Route: 061
  2. CENEGERMIN-BKBJ [Suspect]
     Active Substance: CENEGERMIN-BKBJ
     Indication: Neurotrophic keratopathy
     Dosage: 1 GTT DROPS, 6 TIMES/DAY FOR 8 WEEKS
     Route: 061
  3. DEXAMETHASONE\NEOMYCIN\POLYMYXIN B [Suspect]
     Active Substance: DEXAMETHASONE\NEOMYCIN\POLYMYXIN B
     Indication: Neurotrophic keratopathy
     Dosage: UNK, QD (ONCE DAILY)
     Route: 061
  4. POLYTRIM [Suspect]
     Active Substance: POLYMYXIN B SULFATE\TRIMETHOPRIM SULFATE
     Indication: Neurotrophic keratopathy
     Dosage: UNK
     Route: 061
  5. VALACYCLOVIR [Concomitant]
     Active Substance: VALACYCLOVIR HYDROCHLORIDE
     Indication: Neurotrophic keratopathy
     Dosage: 1 GRAM, BID
     Route: 048

REACTIONS (4)
  - Calcinosis [Not Recovered/Not Resolved]
  - Keratopathy [Not Recovered/Not Resolved]
  - Corneal opacity [Not Recovered/Not Resolved]
  - Off label use [Unknown]
